FAERS Safety Report 6407652-5 (Version None)
Quarter: 2009Q4

REPORT INFORMATION
  Report Type: 
  Country: None (occurrence: None)
  Receive Date: 20091020
  Receipt Date: 20091014
  Transmission Date: 20100525
  Serious: Yes (Death, Other)
  Sender: FDA-Public Use
  Company Number: PHHY2009JP44851

PATIENT
  Sex: Male
  Weight: 61 kg

DRUGS (2)
  1. ZOMETA [Suspect]
     Indication: METASTASES TO BONE
     Dosage: 4 MG FOR EVERY 4 WEEKS
     Route: 042
     Dates: start: 20070816, end: 20071214
  2. DOCETAXEL [Suspect]
     Indication: PROSTATE CANCER
     Dosage: 100 MG EVERY 4 WEEKS
     Route: 042
     Dates: start: 20070814, end: 20071212

REACTIONS (5)
  - HAEMOGLOBIN DECREASED [None]
  - PLATELET COUNT DECREASED [None]
  - PROSTATE CANCER [None]
  - RED BLOOD CELL COUNT DECREASED [None]
  - WHITE BLOOD CELL COUNT DECREASED [None]
